FAERS Safety Report 5778622-5 (Version None)
Quarter: 2008Q2

REPORT INFORMATION
  Report Type: 
  Country: None (occurrence: None)
  Receive Date: 20080617
  Receipt Date: 20080605
  Transmission Date: 20081010
  Serious: Yes (Other)
  Sender: FDA-Public Use
  Company Number: 2008AL006392

PATIENT
  Age: 61 Year
  Sex: Female
  Weight: 75.7507 kg

DRUGS (18)
  1. DIGOXIN [Suspect]
     Indication: CARDIAC DISORDER
     Dosage: 0.25MG DAILY PO
     Route: 048
  2. METFORMIN HCL [Concomitant]
  3. PLAVIX [Concomitant]
  4. LASIX [Concomitant]
  5. ACIPHEX [Concomitant]
  6. XANAX [Concomitant]
  7. MICARDIS [Concomitant]
  8. DULCOLAX [Concomitant]
  9. LYRICA [Concomitant]
  10. CARDIZEM [Concomitant]
  11. LIPITOR [Concomitant]
  12. DILANTIN [Concomitant]
  13. KLOR-CON [Concomitant]
  14. PAXIL [Concomitant]
  15. ADVAIR DISKUS 100/50 [Concomitant]
  16. SPIRIVA [Concomitant]
  17. ALBUTEROL [Concomitant]
  18. NITROGLYCERIN [Concomitant]

REACTIONS (2)
  - MALAISE [None]
  - THERAPEUTIC AGENT TOXICITY [None]
